FAERS Safety Report 14445829 (Version 2)
Quarter: 2018Q1

REPORT INFORMATION
  Report Type: Report from Study
  Country: US (occurrence: US)
  Receive Date: 20180126
  Receipt Date: 20180206
  Transmission Date: 20180509
  Serious: No
  Sender: FDA-Public Use
  Company Number: US-AMGEN-USASL2018010205

PATIENT
  Age: 62 Year
  Sex: Female

DRUGS (2)
  1. ENBREL [Suspect]
     Active Substance: ETANERCEPT
     Indication: RHEUMATOID ARTHRITIS
     Dosage: 50 MG, QWK
     Route: 065
     Dates: start: 201607
  2. ADVIL [Suspect]
     Active Substance: IBUPROFEN
     Indication: MUSCULOSKELETAL PAIN
     Dosage: UNK
     Route: 065
     Dates: start: 201801

REACTIONS (3)
  - Gingival bleeding [Unknown]
  - Musculoskeletal pain [Unknown]
  - Lip swelling [Unknown]

NARRATIVE: CASE EVENT DATE: 2017
